FAERS Safety Report 5824939-5 (Version None)
Quarter: 2008Q3

REPORT INFORMATION
  Report Type: 
  Country: None (occurrence: None)
  Receive Date: 20080728
  Receipt Date: 20080723
  Transmission Date: 20090109
  Serious: Yes (Death, Life-Threatening)
  Sender: FDA-Public Use
  Company Number: BE-PFIZER INC-2008045695

PATIENT
  Sex: Female
  Weight: 65 kg

DRUGS (4)
  1. EXEMESTANE [Suspect]
     Indication: BREAST CANCER
     Route: 048
     Dates: start: 20060720, end: 20080519
  2. TRIPTORELIN [Suspect]
     Indication: BREAST CANCER
     Route: 030
     Dates: start: 20060719, end: 20080519
  3. CITALOPRAM HYDROBROMIDE [Concomitant]
     Indication: ANTIDEPRESSANT THERAPY
     Dosage: DAILY DOSE:20MG
     Dates: start: 20080101, end: 20080519
  4. REMERGON [Concomitant]
     Indication: ANTIDEPRESSANT THERAPY
     Dosage: DAILY DOSE:15MG
     Dates: start: 20080101, end: 20080501

REACTIONS (1)
  - HEPATIC FAILURE [None]
